FAERS Safety Report 7508564-6 (Version None)
Quarter: 2011Q2

REPORT INFORMATION
  Report Type: 
  Country: None (occurrence: None)
  Receive Date: 20110527
  Receipt Date: 20110518
  Transmission Date: 20111010
  Serious: Yes (Hospitalization)
  Sender: FDA-Public Use
  Company Number: US-ASTRAZENECA-2011SE30041

PATIENT
  Age: 58 Year
  Sex: Female

DRUGS (21)
  1. CALCIPOTRIOL PLUS BETAMETHASONE DIPROPRIONATE [Concomitant]
     Dates: start: 19900101
  2. PHENERGAN HCL [Concomitant]
     Dates: start: 20101126
  3. VITAMIN B COMPLEX CAP [Concomitant]
  4. XELODA [Concomitant]
  5. CALTRATE+D [Concomitant]
     Dates: start: 20090601
  6. LEVOXYL [Concomitant]
     Dates: start: 20090601
  7. VITAMIN D [Concomitant]
     Dates: start: 20090601
  8. DEXAMETHASONE [Concomitant]
     Dates: start: 20101004
  9. DILAUDID [Concomitant]
     Dates: start: 20101124
  10. VITAMIN D [Concomitant]
  11. MULTI-VITAMIN [Concomitant]
  12. FULVESTRANT [Suspect]
     Indication: BREAST CANCER METASTATIC
     Route: 030
     Dates: start: 20101001, end: 20101221
  13. VITAMIN B [Concomitant]
     Dates: start: 20090601
  14. XANAX [Concomitant]
     Dates: start: 20100910
  15. ATIVAN [Concomitant]
     Dates: start: 20100910
  16. CLARITIN [Concomitant]
     Dates: start: 20100922
  17. SPRYCEL [Suspect]
     Indication: BREAST CANCER METASTATIC
     Route: 065
     Dates: start: 20100930, end: 20110111
  18. FLOMAX [Concomitant]
     Dates: start: 20061201
  19. TAXOTERE [Concomitant]
  20. SIMPLY SLEEP TYLENOL [Concomitant]
     Dates: start: 20081001
  21. SYNTHROID [Concomitant]

REACTIONS (5)
  - ABDOMINAL PAIN [None]
  - PLEURAL EFFUSION [None]
  - CHOLECYSTITIS [None]
  - HEPATIC CYST [None]
  - NAUSEA [None]
